FAERS Safety Report 5729404-1 (Version None)
Quarter: 2008Q2

REPORT INFORMATION
  Report Type: 
  Country: None (occurrence: None)
  Receive Date: 20080506
  Receipt Date: 20080424
  Transmission Date: 20081010
  Serious: Yes (Hospitalization)
  Sender: FDA-Public Use
  Company Number: JP-SANOFI-SYNTHELABO-A01200804606

PATIENT
  Age: 2 Day
  Sex: Female

DRUGS (7)
  1. CARPERITIDE [Suspect]
     Indication: ATRIOVENTRICULAR BLOCK COMPLETE
     Dosage: 0.05 MCG/KG/MIN
     Route: 042
  2. CARPERITIDE [Suspect]
     Dosage: 0.2 MCG/KG/MIN
     Route: 042
  3. DOBUTAMINE HCL [Concomitant]
     Indication: DRUG USE FOR UNKNOWN INDICATION
     Dosage: UNK
     Route: 065
  4. DOPAMINE HCL [Concomitant]
     Indication: DRUG USE FOR UNKNOWN INDICATION
     Dosage: UNK
     Route: 065
  5. NITROGLYCERIN [Concomitant]
     Indication: DRUG USE FOR UNKNOWN INDICATION
     Dosage: UNK
     Route: 065
  6. MILRILA [Suspect]
     Indication: SHOCK
     Dosage: 0.3 MCG/KG/MIN
     Route: 042
  7. MILRILA [Suspect]
     Dosage: 0.5 MCG/KG/MIN
     Route: 042

REACTIONS (1)
  - PATENT DUCTUS ARTERIOSUS [None]
